FAERS Safety Report 7290995-3 (Version None)
Quarter: 2011Q1

REPORT INFORMATION
  Report Type: 
  Country: None (occurrence: None)
  Receive Date: 20110214
  Receipt Date: 20110201
  Transmission Date: 20110831
  Serious: Yes (Other)
  Sender: FDA-Public Use
  Company Number: NL-ROCHE-759213

PATIENT
  Sex: Female

DRUGS (5)
  1. XELODA [Suspect]
     Route: 048
  2. CISPLATIN [Suspect]
     Route: 042
  3. XELODA [Suspect]
     Route: 048
  4. CISPLATIN [Suspect]
     Route: 042
  5. EPIRUBICIN [Suspect]
     Route: 042

REACTIONS (2)
  - NEOPLASM MALIGNANT [None]
  - PALMAR-PLANTAR ERYTHRODYSAESTHESIA SYNDROME [None]
